FAERS Safety Report 9856846 (Version 2)
Quarter: 2014Q2

REPORT INFORMATION
  Report Type: Spontaneous
  Country: US (occurrence: US)
  Receive Date: 20140130
  Receipt Date: 20140402
  Transmission Date: 20141212
  Serious: No
  Sender: FDA-Public Use
  Company Number: US-TEVA-459567USA

PATIENT
  Age: 36 Year
  Sex: Female
  Weight: 61.29 kg

DRUGS (1)
  1. PARAGARD 380A [Suspect]
     Indication: CONTRACEPTION
     Route: 015
     Dates: start: 20130514, end: 20140128

REACTIONS (6)
  - Metrorrhagia [Unknown]
  - Pelvic pain [Unknown]
  - Rash generalised [Unknown]
  - Pruritus [Unknown]
  - Nasal congestion [Unknown]
  - Back pain [Unknown]
